FAERS Safety Report 5404902-9 (Version None)
Quarter: 2007Q3

REPORT INFORMATION
  Report Type: 
  Country: None (occurrence: None)
  Receive Date: 20070803
  Receipt Date: 20070731
  Transmission Date: 20080115
  Serious: Yes (Death, Hospitalization, Other)
  Sender: FDA-Public Use
  Company Number: KR-NOVOPROD-265329

PATIENT
  Sex: Male
  Weight: 54 kg

DRUGS (5)
  1. NOVOSEVEN [Suspect]
     Indication: FACTOR VII DEFICIENCY
     Dosage: 86.4 MG IN 72 INJECTIONS
     Route: 042
  2. ETOPOSIDE [Concomitant]
     Dates: start: 20061201, end: 20061205
  3. CEFEPIME [Concomitant]
     Dates: start: 20061212, end: 20061216
  4. TARGOCID [Concomitant]
     Dates: start: 20061214, end: 20061224
  5. FUNGIZONE [Concomitant]
     Dates: start: 20061223, end: 20061224

REACTIONS (2)
  - DRUG INEFFECTIVE [None]
  - GASTROINTESTINAL HAEMORRHAGE [None]
